FAERS Safety Report 6121145-4 (Version None)
Quarter: 2009Q1

REPORT INFORMATION
  Report Type: 
  Country: None (occurrence: None)
  Receive Date: 20090317
  Receipt Date: 20090306
  Transmission Date: 20090719
  Serious: Yes (Hospitalization)
  Sender: FDA-Public Use
  Company Number: A0773332A

PATIENT
  Age: 62 Year
  Sex: Female
  Weight: 109.1 kg

DRUGS (7)
  1. AVANDIA [Suspect]
     Indication: DIABETES MELLITUS
     Dosage: 4MG PER DAY
     Route: 048
     Dates: start: 20010101, end: 20070601
  2. METFORMIN HCL [Concomitant]
  3. PREDNISONE [Concomitant]
  4. PREDNISOLONE [Concomitant]
  5. METOPROLOL TARTRATE [Concomitant]
  6. SIMVASTATIN [Concomitant]
  7. LASIX [Concomitant]
     Dates: start: 19960101

REACTIONS (3)
  - CARDIAC FAILURE CONGESTIVE [None]
  - MYOCARDIAL INFARCTION [None]
  - PULMONARY OEDEMA [None]
